FAERS Safety Report 26183952 (Version 1)
Quarter: 2025Q4

REPORT INFORMATION
  Report Type: Spontaneous
  Country: US (occurrence: US)
  Receive Date: 20251222
  Receipt Date: 20251222
  Transmission Date: 20260118
  Serious: No
  Sender: IPSEN BIOPHARMACEUTICALS, INC.
  Company Number: US-IPSEN Group, Research and Development-2025-30609

PATIENT
  Sex: Female

DRUGS (18)
  1. IQIRVO [Suspect]
     Active Substance: ELAFIBRANOR
     Indication: Primary biliary cholangitis
     Route: 048
     Dates: start: 20251106
  2. ALBUTEROL AER HFA [Concomitant]
  3. ATORVASTATIN [Concomitant]
     Active Substance: ATORVASTATIN
  4. BAQSIMI [Concomitant]
     Active Substance: GLUCAGON
     Dosage: BAQSIMI ONE POW 3MG/DOSE;
  5. DILTIAZEM [Concomitant]
     Active Substance: DILTIAZEM
  6. ELIQUIS [Concomitant]
     Active Substance: APIXABAN
  7. LANTUS [Concomitant]
     Active Substance: INSULIN GLARGINE
  8. LEVOCETIRIZINE DIHYDROCHLORIDE [Concomitant]
     Active Substance: LEVOCETIRIZINE DIHYDROCHLORIDE
  9. LEVOTHYROXINE [Concomitant]
     Active Substance: LEVOTHYROXINE
  10. METFORMIN [Concomitant]
     Active Substance: METFORMIN HYDROCHLORIDE
  11. METOPROLOL TARTRATE [Concomitant]
     Active Substance: METOPROLOL TARTRATE
  12. MONTELUKAST [Concomitant]
     Active Substance: MONTELUKAST
  13. OCALIVA [Concomitant]
     Active Substance: OBETICHOLIC ACID
  14. OYST SHELL/D [Concomitant]
  15. SPIRONOLACTONE [Concomitant]
     Active Substance: SPIRONOLACTONE
  16. TRULICITY [Concomitant]
     Active Substance: DULAGLUTIDE
     Dosage: TRULICITY INJ 1.5/0.5;
  17. URSODIOL [Concomitant]
     Active Substance: URSODIOL
  18. URSODIOL [Concomitant]
     Active Substance: URSODIOL

REACTIONS (2)
  - Memory impairment [Not Recovered/Not Resolved]
  - Product dose omission issue [Unknown]
